FAERS Safety Report 7772537-9 (Version None)
Quarter: 2011Q3

REPORT INFORMATION
  Report Type: 
  Country: None (occurrence: None)
  Receive Date: 20110922
  Receipt Date: 20101123
  Transmission Date: 20111222
  Serious: No
  Sender: FDA-Public Use
  Company Number: US-ASTRAZENECA-2010SE55817

PATIENT
  Age: 517 Month
  Sex: Female
  Weight: 81.6 kg

DRUGS (3)
  1. SEROQUEL [Suspect]
     Indication: BIPOLAR DISORDER
     Route: 048
     Dates: start: 20050101, end: 20100401
  2. 4-5 DIFFRENT MEDICATION [Concomitant]
  3. SEROQUEL [Suspect]
     Dosage: AT NIGHT
     Route: 048
     Dates: start: 20100401, end: 20100701

REACTIONS (5)
  - DRUG DOSE OMISSION [None]
  - TACHYPHRENIA [None]
  - ANGER [None]
  - IRRITABILITY [None]
  - DRUG INEFFECTIVE [None]
